FAERS Safety Report 18380552 (Version 1)
Quarter: 2020Q4

REPORT INFORMATION
  Report Type: Spontaneous
  Country: IT (occurrence: IT)
  Receive Date: 20201013
  Receipt Date: 20201013
  Transmission Date: 20210114
  Serious: Yes (Other)
  Sender: FDA-Public Use
  Company Number: IT-BAXTER-2020BAX020886

PATIENT
  Age: 23 Year
  Sex: Female

DRUGS (10)
  1. CISPLATIN. [Suspect]
     Active Substance: CISPLATIN
     Indication: DESMOPLASTIC SMALL ROUND CELL TUMOUR
     Route: 065
  2. DOXIL [Suspect]
     Active Substance: DOXORUBICIN HYDROCHLORIDE
     Indication: DESMOPLASTIC SMALL ROUND CELL TUMOUR
     Dosage: 25 MG/M2, DAILY (ON DAYS 3,4,5, (ALTERNATED EVERY 3 WEEKS))
     Route: 065
  3. GEMCITABINE. [Concomitant]
     Active Substance: GEMCITABINE
     Indication: DESMOPLASTIC SMALL ROUND CELL TUMOUR
     Dosage: 1000 MG/M2, DAILY (ON DAYS 1 AND 8, (ALTERNATED EVERY 3 WEEKS))
     Route: 065
  4. FOLINIC ACID [Concomitant]
     Active Substance: LEUCOVORIN
     Indication: DESMOPLASTIC SMALL ROUND CELL TUMOUR
     Dosage: 200 MG/M2 (ALTERNATED EVERY 3 WEEKS)
     Route: 065
  5. METHOTREXATE. [Concomitant]
     Active Substance: METHOTREXATE
     Indication: DESMOPLASTIC SMALL ROUND CELL TUMOUR
     Dosage: 700 MG/M2, DAILY (ON DAY 1, (ALTERNATED EVERY 3 WEEKS))
     Route: 065
  6. IFOSFAMIDE. [Concomitant]
     Active Substance: IFOSFAMIDE
     Indication: DESMOPLASTIC SMALL ROUND CELL TUMOUR
     Dosage: 1200 MG/M2, DAILY (PER 5 DAYS, (ALTERNATED EVERY 3 WEEKS))
     Route: 065
  7. BLEOMYCIN [Suspect]
     Active Substance: BLEOMYCIN SULFATE
     Indication: DESMOPLASTIC SMALL ROUND CELL TUMOUR
     Dosage: 15 MG/M2, DAILY (ON DAYS 1 AND 8, (ALTERNATED EVERY 3 WEEKS))
     Route: 065
  8. 5-FLUOROURACIL [Concomitant]
     Active Substance: FLUOROURACIL
     Indication: DESMOPLASTIC SMALL ROUND CELL TUMOUR
     Dosage: 750 MG/M2, DAILY (ON DAY 2, (ALTERNATED EVERY 3 WEEKS))
     Route: 065
  9. ETOPOSIDE. [Suspect]
     Active Substance: ETOPOSIDE
     Indication: DESMOPLASTIC SMALL ROUND CELL TUMOUR
     Dosage: 100 MG/M2, DAILY (PER 5 DAYS, (ALTERNATED EVERY 3 WEEKS))
     Route: 065
  10. DACARBAZINE. [Concomitant]
     Active Substance: DACARBAZINE
     Indication: DESMOPLASTIC SMALL ROUND CELL TUMOUR
     Dosage: 200 MG/M2, DAILY (PER 5 DAYS, (ALTERNATED EVERY 3 WEEKS))
     Route: 065

REACTIONS (6)
  - Alopecia [Unknown]
  - Thrombocytopenia [Recovered/Resolved]
  - Stomatitis [Unknown]
  - Vomiting [Unknown]
  - Nausea [Unknown]
  - Febrile neutropenia [Recovered/Resolved]
